FAERS Safety Report 23171632 (Version 1)
Quarter: 2023Q4

REPORT INFORMATION
  Report Type: Spontaneous
  Country: NL (occurrence: NL)
  Receive Date: 20231110
  Receipt Date: 20231110
  Transmission Date: 20240110
  Serious: Yes (Death)
  Sender: FDA-Public Use
  Company Number: None

PATIENT
  Age: 76 Year
  Sex: Female
  Weight: 58 kg

DRUGS (10)
  1. PACLITAXEL [Suspect]
     Active Substance: PACLITAXEL
     Indication: Oesophageal carcinoma
     Dosage: ACCORDING TO CROSS SCHEDULE
     Dates: start: 20230426, end: 20230607
  2. MIDAZOLAM HYDROCHLORIDE/ Brand name not specified [Concomitant]
     Indication: Product used for unknown indication
  3. PROPOFOL [Concomitant]
     Active Substance: PROPOFOL
     Indication: Product used for unknown indication
  4. OMEPRAZOLE [Concomitant]
     Active Substance: OMEPRAZOLE
     Indication: Product used for unknown indication
     Dosage: GASTRO-RESISTANT CAPSULE, 20 MG
  5. FENTANYL / Brand name not specified [Concomitant]
     Indication: Product used for unknown indication
  6. CAPTOPRIL / Brand name not specified [Concomitant]
     Indication: Product used for unknown indication
  7. SULFAMETHOXAZOLE\TRIMETHOPRIM [Concomitant]
     Active Substance: SULFAMETHOXAZOLE\TRIMETHOPRIM
     Indication: Product used for unknown indication
     Dosage: 3X DAAGS 1920MG?ENGLISH TRANSLATION: 3 TIMES A DAY 1920 MG
  8. NADROPARINE solution for injection 9500IE/ML / FRAXIPARINE solution fo [Concomitant]
     Indication: Product used for unknown indication
  9. OXAZEPAMTABLET 10MG / Brand name not specified [Concomitant]
     Indication: Product used for unknown indication
     Dosage: IF NECESSARY 5 MG A DAY
  10. PREDNISOLON CAPSULE 60MG / Brand name not specified [Concomitant]
     Indication: Product used for unknown indication

REACTIONS (1)
  - Interstitial lung disease [Fatal]
